FAERS Safety Report 6851118-5 (Version None)
Quarter: 2010Q3

REPORT INFORMATION
  Report Type: 
  Country: None (occurrence: None)
  Receive Date: 20100716
  Receipt Date: 20071126
  Transmission Date: 20110219
  Serious: No
  Sender: FDA-Public Use
  Company Number: US-PFIZER INC-2007091900

PATIENT
  Sex: Female
  Weight: 45.4 kg

DRUGS (4)
  1. CHANTIX [Suspect]
     Indication: SMOKING CESSATION THERAPY
  2. ATENOLOL [Concomitant]
  3. IBUPROFEN [Concomitant]
  4. ACETYLSALICYLIC ACID [Concomitant]

REACTIONS (5)
  - ABNORMAL DREAMS [None]
  - AMNESIA [None]
  - HEADACHE [None]
  - MALAISE [None]
  - MOOD ALTERED [None]
